FAERS Safety Report 6873855-9 (Version None)
Quarter: 2010Q3

REPORT INFORMATION
  Report Type: 
  Country: None (occurrence: None)
  Receive Date: 20100723
  Receipt Date: 20090411
  Transmission Date: 20110219
  Serious: No
  Sender: FDA-Public Use
  Company Number: US-PFIZER INC-2009185158

PATIENT
  Sex: Female
  Weight: 68.038 kg

DRUGS (2)
  1. CHANTIX [Suspect]
     Indication: SMOKING CESSATION THERAPY
     Dosage: 0.5 MG, 2X/DAY
     Dates: start: 20090306
  2. GLUCOTROL XL [Concomitant]
     Dosage: UNK

REACTIONS (7)
  - CHEST DISCOMFORT [None]
  - DYSPHONIA [None]
  - FATIGUE [None]
  - INFLUENZA LIKE ILLNESS [None]
  - INSOMNIA [None]
  - SNORING [None]
  - SOMNOLENCE [None]
